FAERS Safety Report 7466265-7 (Version None)
Quarter: 2011Q2

REPORT INFORMATION
  Report Type: 
  Country: None (occurrence: None)
  Receive Date: 20110428
  Receipt Date: 20110414
  Transmission Date: 20111010
  Serious: Yes (Other)
  Sender: FDA-Public Use
  Company Number: AUR-APL-2011-01293

PATIENT
  Age: 64 Year
  Sex: Male

DRUGS (6)
  1. VENLAFAXINE [Concomitant]
  2. DIAZEPAM [Concomitant]
  3. CITALOPRAM [Concomitant]
  4. CITALOPRAM HYDROBROMIDE [Suspect]
  5. LEVOTHYROXINE SODIUM [Concomitant]
  6. AMITRIPTYLINE HCL [Concomitant]

REACTIONS (1)
  - MYOPATHY [None]
